FAERS Safety Report 23064170 (Version 1)
Quarter: 2023Q4

REPORT INFORMATION
  Report Type: Spontaneous
  Country: DE (occurrence: DE)
  Receive Date: 20231013
  Receipt Date: 20231013
  Transmission Date: 20240109
  Serious: Yes (Disabling, Other)
  Sender: FDA-Public Use
  Company Number: None

PATIENT

DRUGS (1)
  1. LAMOTRIGINE [Suspect]
     Active Substance: LAMOTRIGINE
     Indication: Product used for unknown indication
     Dosage: MOTHER DOSE: 150 MG PER DAY (3X 50 MG.)
     Route: 064

REACTIONS (2)
  - Foetal exposure during pregnancy [Unknown]
  - Syndactyly [Unknown]

NARRATIVE: CASE EVENT DATE: 20200505
